FAERS Safety Report 15554317 (Version 1)
Quarter: 2018Q4

REPORT INFORMATION
  Report Type: Spontaneous
  Country: US (occurrence: US)
  Receive Date: 20181026
  Receipt Date: 20181026
  Transmission Date: 20190205
  Serious: No
  Sender: FDA-Public Use
  Company Number: US-PFIZER INC-2018433311

PATIENT
  Age: 46 Year
  Sex: Male

DRUGS (7)
  1. WELLBUTRIN [Concomitant]
     Active Substance: BUPROPION HYDROCHLORIDE
     Dosage: UNK
  2. MOTRIN [Concomitant]
     Active Substance: IBUPROFEN
     Dosage: 800 MG, UNK (TAKES THEM EITHER 2 OR 3 TIMES/DAY)
  3. ZYPREXA [Concomitant]
     Active Substance: OLANZAPINE
     Dosage: UNK
  4. PERCOCET [Interacting]
     Active Substance: ACETAMINOPHEN\OXYCODONE HYDROCHLORIDE
     Dosage: UNK
  5. ZOLOFT [Concomitant]
     Active Substance: SERTRALINE HYDROCHLORIDE
     Dosage: UNK
  6. LYRICA [Suspect]
     Active Substance: PREGABALIN
     Dosage: 75 MG, 2X/DAY
     Dates: start: 201810
  7. BACLOFEN. [Concomitant]
     Active Substance: BACLOFEN
     Dosage: UNK

REACTIONS (20)
  - Somnolence [Not Recovered/Not Resolved]
  - Gait disturbance [Unknown]
  - Confusional state [Unknown]
  - Drug interaction [Unknown]
  - Eructation [Unknown]
  - Dry mouth [Unknown]
  - Dizziness [Unknown]
  - Dysstasia [Unknown]
  - Nausea [Unknown]
  - Balance disorder [Unknown]
  - Flatulence [Unknown]
  - Dysarthria [Unknown]
  - Anger [Unknown]
  - Visual impairment [Unknown]
  - Erythema [Unknown]
  - Sensory disturbance [Unknown]
  - Feeling abnormal [Unknown]
  - Disturbance in attention [Not Recovered/Not Resolved]
  - Dysgeusia [Unknown]
  - Irritability [Unknown]

NARRATIVE: CASE EVENT DATE: 20181020
